FAERS Safety Report 11198618 (Version 1)
Quarter: 2015Q2

REPORT INFORMATION
  Report Type: Spontaneous
  Country: SG (occurrence: SG)
  Receive Date: 20150618
  Receipt Date: 20150618
  Transmission Date: 20150821
  Serious: Yes (Other)
  Sender: FDA-Public Use
  Company Number: SG-UCBSA-2015019004

PATIENT
  Age: 64 Year
  Sex: Male

DRUGS (3)
  1. OMEPRAZOLE. [Suspect]
     Active Substance: OMEPRAZOLE
     Indication: PRODUCT USED FOR UNKNOWN INDICATION
     Dosage: UNK
  2. PIPERACILLIN [Suspect]
     Active Substance: PIPERACILLIN
     Indication: PRODUCT USED FOR UNKNOWN INDICATION
     Dosage: UNK
  3. TAZOBACTAM [Suspect]
     Active Substance: TAZOBACTAM
     Indication: PRODUCT USED FOR UNKNOWN INDICATION
     Dosage: UNK

REACTIONS (2)
  - Palpable purpura [Unknown]
  - Vasculitis [Unknown]

NARRATIVE: CASE EVENT DATE: 20150419
